FAERS Safety Report 9807502 (Version 1)
Quarter: 2014Q1

REPORT INFORMATION
  Report Type: Spontaneous
  Country: US (occurrence: US)
  Receive Date: 20140110
  Receipt Date: 20140110
  Transmission Date: 20141002
  Serious: No
  Sender: FDA-Public Use
  Company Number: US-SA-2013SA098946

PATIENT
  Age: 81 Year
  Sex: Male

DRUGS (4)
  1. PLAVIX [Suspect]
     Indication: TYPE 2 DIABETES MELLITUS
     Route: 065
  2. SYMLIN [Suspect]
     Indication: TYPE 2 DIABETES MELLITUS
     Dosage: START DATE -- ABOUT A YEAR AND HALF AGO
     Route: 058
  3. SYMLIN [Suspect]
     Indication: TYPE 2 DIABETES MELLITUS
     Route: 058
  4. NOVOLOG [Concomitant]

REACTIONS (2)
  - Injection site bruising [Unknown]
  - Blood glucose decreased [Unknown]
